FAERS Safety Report 6857949-X (Version None)
Quarter: 2010Q3

REPORT INFORMATION
  Report Type: 
  Country: None (occurrence: None)
  Receive Date: 20100714
  Receipt Date: 20100705
  Transmission Date: 20110219
  Serious: Yes (Hospitalization)
  Sender: FDA-Public Use
  Company Number: TCI2010A02663

PATIENT
  Age: 72 Year
  Sex: Female

DRUGS (7)
  1. LANSOPRAZOLE [Suspect]
     Indication: REFLUX OESOPHAGITIS
     Dosage: 15 MG (15 MG, 1 IN 1 D) PER ORAL
     Route: 048
     Dates: start: 20080530, end: 20081004
  2. BLOPRESS TABLETS 4 (CANDESARTAN CILEXETIL) [Concomitant]
  3. PRAVASTATIN [Concomitant]
  4. ASPIRIN [Concomitant]
  5. HALCION [Concomitant]
  6. KERLONE [Concomitant]
  7. MARZULENE S (LEVOGLUTAMIDE, SODIUM GUALENATE) [Concomitant]

REACTIONS (4)
  - COLITIS COLLAGENOUS [None]
  - COLITIS ISCHAEMIC [None]
  - HAEMATOCHEZIA [None]
  - LARGE INTESTINAL ULCER [None]
